FAERS Safety Report 13264708 (Version 3)
Quarter: 2017Q2

REPORT INFORMATION
  Report Type: Report from Study
  Country: US (occurrence: US)
  Receive Date: 20170223
  Receipt Date: 20170413
  Transmission Date: 20170830
  Serious: Yes (Hospitalization)
  Sender: FDA-Public Use
  Company Number: US-009507513-1702USA006608

PATIENT
  Age: 68 Year
  Sex: Male

DRUGS (1)
  1. PEMBROLIZUMAB. [Suspect]
     Active Substance: PEMBROLIZUMAB
     Indication: NON-SMALL CELL LUNG CANCER
     Dosage: 100 MG, Q3W; STRENGTH: 100 MG
     Route: 042
     Dates: start: 20170207

REACTIONS (9)
  - Vomiting [Recovered/Resolved]
  - Hyperhidrosis [Unknown]
  - Chills [Unknown]
  - Asthenia [Not Recovered/Not Resolved]
  - Decreased appetite [Unknown]
  - Pyrexia [Not Recovered/Not Resolved]
  - Nausea [Unknown]
  - Musculoskeletal pain [Not Recovered/Not Resolved]
  - Drug dose omission [Unknown]

NARRATIVE: CASE EVENT DATE: 201702
